FAERS Safety Report 5989690-X (Version None)
Quarter: 2008Q4

REPORT INFORMATION
  Report Type: 
  Country: None (occurrence: None)
  Receive Date: 20081210
  Receipt Date: 20081204
  Transmission Date: 20090506
  Serious: Yes (Hospitalization, Other)
  Sender: FDA-Public Use
  Company Number: US-ROXANE LABORATORIES, INC.-2008-RO-00354RO

PATIENT
  Age: 8 Year
  Sex: Male

DRUGS (14)
  1. PREDNISONE TAB [Suspect]
     Indication: SARCOIDOSIS
  2. MORPHINE [Suspect]
     Indication: PAIN
     Route: 042
  3. ANTIBIOTICS [Suspect]
     Indication: LUNG INFILTRATION
     Route: 042
  4. ANTIBIOTICS [Suspect]
     Indication: LUNG CONSOLIDATION
  5. ANTIBIOTICS [Suspect]
     Indication: HYPOXIA
  6. METHYLPREDNISOLONE 16MG TAB [Suspect]
     Indication: LYMPHADENOPATHY
     Route: 042
  7. METHYLPREDNISOLONE 16MG TAB [Suspect]
     Indication: PLEURAL EFFUSION
     Route: 042
  8. METHYLPREDNISOLONE 16MG TAB [Suspect]
     Indication: CARDIAC DISORDER
  9. KETOROLAC TROMETHAMINE [Suspect]
     Route: 042
  10. RED CELL TRANSFUSION [Concomitant]
     Indication: HYPOXIA
  11. RED CELL TRANSFUSION [Concomitant]
     Indication: PLEURAL EFFUSION
  12. RED CELL TRANSFUSION [Concomitant]
     Indication: ANAEMIA
  13. RED CELL TRANSFUSION [Concomitant]
     Indication: HAEMOGLOBIN
  14. RED CELL TRANSFUSION [Concomitant]
     Indication: DYSPNOEA

REACTIONS (5)
  - BONE INFARCTION [None]
  - PAIN [None]
  - PLEURAL EFFUSION [None]
  - PULMONARY OEDEMA [None]
  - VENOOCCLUSIVE DISEASE [None]
